FAERS Safety Report 8818399 (Version 3)
Quarter: 2012Q4

REPORT INFORMATION
  Report Type: 
  Country: JP (occurrence: JP)
  Receive Date: 20121001
  Receipt Date: 20121016
  Transmission Date: 20130627
  Serious: Yes (Other)
  Sender: FDA-Public Use
  Company Number: JP-ROCHE-1137789

PATIENT
  Age: 34 Year
  Sex: Female

DRUGS (3)
  1. CEFTRIAXONE [Suspect]
     Indication: PRODUCT USED FOR UNKNOWN INDICATION
     Route: 041
  2. BENZALKONIUM CHLORIDE [Concomitant]
     Dosage: Dosage is uncertain.
     Route: 067
  3. RITODRINE HYDROCHLORIDE [Concomitant]
     Route: 041

REACTIONS (2)
  - Abortion [Unknown]
  - Exposure during pregnancy [Unknown]
